FAERS Safety Report 5403273-1 (Version None)
Quarter: 2007Q3

REPORT INFORMATION
  Report Type: 
  Country: None (occurrence: None)
  Receive Date: 20070801
  Receipt Date: 20070726
  Transmission Date: 20080115
  Serious: Yes (Other)
  Sender: FDA-Public Use
  Company Number: GB-PFIZER INC-2007062379

PATIENT
  Age: 50 Year
  Sex: Male

DRUGS (6)
  1. SERTRALINE [Suspect]
     Indication: DEPRESSION
     Route: 048
  2. AMITRIPTYLINE HCL [Concomitant]
     Indication: NECK PAIN
     Route: 048
  3. DIAZEPAM [Concomitant]
     Indication: NECK PAIN
     Route: 048
  4. DICLOFENAC SODIUM [Concomitant]
     Indication: NECK PAIN
     Route: 048
  5. NARATRIPTAN [Concomitant]
     Indication: NECK PAIN
     Route: 048
  6. OMEPRAZOLE [Concomitant]
     Indication: NECK PAIN
     Route: 048

REACTIONS (3)
  - ALOPECIA [None]
  - PHOTOSENSITIVITY REACTION [None]
  - SUNBURN [None]
